FAERS Safety Report 22062135 (Version 1)
Quarter: 2023Q1

REPORT INFORMATION
  Report Type: Spontaneous
  Country: US (occurrence: US)
  Receive Date: 20230304
  Receipt Date: 20230304
  Transmission Date: 20230418
  Serious: No
  Sender: FDA-Public Use
  Company Number: US-Teikoku Pharma USA-TPU2023-00030

PATIENT
  Sex: Female
  Weight: 99.880 kg

DRUGS (3)
  1. LIDODERM [Suspect]
     Active Substance: LIDOCAINE
     Indication: Back pain
     Route: 061
     Dates: start: 2004
  2. LIDODERM [Suspect]
     Active Substance: LIDOCAINE
     Indication: Bone pain
  3. LIDOCAINE PATCH [Suspect]
     Active Substance: LIDOCAINE
     Indication: Back pain

REACTIONS (3)
  - Incorrect dose administered [Unknown]
  - Dermatitis allergic [Unknown]
  - Drug ineffective for unapproved indication [Unknown]
